FAERS Safety Report 13592492 (Version 8)
Quarter: 2019Q1

REPORT INFORMATION
  Report Type: Report from Study
  Country: US (occurrence: US)
  Receive Date: 20170530
  Receipt Date: 20190329
  Transmission Date: 20190417
  Serious: No
  Sender: FDA-Public Use
  Company Number: PHHY2017US077713

PATIENT
  Age: 40 Year
  Sex: Female

DRUGS (29)
  1. CAYSTON [Suspect]
     Active Substance: AZTREONAM
     Dosage: 75 OT, TID
     Route: 065
     Dates: start: 20170801, end: 20170829
  2. CAYSTON [Suspect]
     Active Substance: AZTREONAM
     Dosage: 75 OT, TID
     Route: 065
     Dates: start: 20171001, end: 20171029
  3. CAYSTON [Suspect]
     Active Substance: AZTREONAM
     Dosage: 75 OT, TID
     Route: 065
     Dates: start: 20171201, end: 20171229
  4. ZITHROMAX [Concomitant]
     Active Substance: AZITHROMYCIN DIHYDRATE
     Indication: CYSTIC FIBROSIS
     Dosage: UNK
     Route: 065
     Dates: start: 20030109
  5. CIPRO [Concomitant]
     Active Substance: CIPROFLOXACIN HYDROCHLORIDE
     Indication: SINUS CONGESTION
     Dosage: UNK
     Route: 065
     Dates: start: 20181116, end: 20181129
  6. TOBI [Suspect]
     Active Substance: TOBRAMYCIN
     Indication: PSEUDOMONAS INFECTION
     Dosage: 300 OT, BID
     Route: 055
     Dates: start: 20170502, end: 20170530
  7. TOBI [Suspect]
     Active Substance: TOBRAMYCIN
     Dosage: 300 OT, BID
     Route: 055
     Dates: start: 20171101, end: 20171129
  8. CAYSTON [Suspect]
     Active Substance: AZTREONAM
     Dosage: 75 OT, TID
     Route: 065
     Dates: start: 20170401, end: 20170428
  9. CREON [Concomitant]
     Active Substance: PANCRELIPASE AMYLASE\PANCRELIPASE LIPASE\PANCRELIPASE PROTEASE
     Indication: PANCREATIC FAILURE
     Dosage: UNK
     Route: 065
     Dates: start: 20110907
  10. TOBI PODHALER [Suspect]
     Active Substance: TOBRAMYCIN
     Indication: CYSTIC FIBROSIS
     Dosage: UNK
     Route: 065
     Dates: start: 20150526, end: 20170331
  11. ALBUTEROL. [Concomitant]
     Active Substance: ALBUTEROL
     Indication: CYSTIC FIBROSIS
     Dosage: UNK
     Route: 065
     Dates: start: 20120509
  12. MULTI VITAMIN [Concomitant]
     Active Substance: VITAMINS
     Indication: SUPPLEMENTATION THERAPY
     Dosage: UNK
     Route: 065
     Dates: start: 20090209
  13. ORTHO TRI CYCLEN [Concomitant]
     Active Substance: ETHINYL ESTRADIOL\NORGESTIMATE
     Indication: CONTRACEPTION
     Dosage: UNK
     Route: 065
     Dates: start: 20030627
  14. MIRALAX [Concomitant]
     Active Substance: POLYETHYLENE GLYCOL 3350
     Indication: CONSTIPATION
     Dosage: UNK
     Route: 065
     Dates: start: 20031226
  15. TOBI [Suspect]
     Active Substance: TOBRAMYCIN
     Indication: CYSTIC FIBROSIS
     Dosage: UNK
     Route: 065
     Dates: start: 20170501
  16. TOBI [Suspect]
     Active Substance: TOBRAMYCIN
     Dosage: 300 OT, BID
     Route: 055
     Dates: start: 20170701
  17. CAYSTON [Suspect]
     Active Substance: AZTREONAM
     Indication: PRODUCT USED FOR UNKNOWN INDICATION
     Dosage: UNK
     Route: 065
     Dates: start: 20120210
  18. HYDRODIURIL [Concomitant]
     Active Substance: HYDROCHLOROTHIAZIDE
     Indication: HYPERTENSION
     Dosage: UNK
     Route: 065
     Dates: start: 20160309
  19. CAYSTON [Suspect]
     Active Substance: AZTREONAM
     Dosage: 75 OT, TID
     Route: 065
     Dates: start: 20170601, end: 20170629
  20. ZYRTEC [Concomitant]
     Active Substance: CETIRIZINE HYDROCHLORIDE
     Indication: RHINITIS ALLERGIC
     Dosage: UNK
     Route: 065
     Dates: start: 20130627
  21. SINGULAIR [Concomitant]
     Active Substance: MONTELUKAST SODIUM
     Indication: RHINITIS ALLERGIC
     Dosage: UNK
     Route: 065
     Dates: start: 20080627
  22. NEILMED SINUS RINSE [Concomitant]
     Active Substance: SODIUM BICARBONATE\SODIUM CHLORIDE
     Indication: CHRONIC SINUSITIS
     Dosage: UNK
     Route: 065
     Dates: start: 20080627
  23. HYPERSAL [Concomitant]
     Indication: CYSTIC FIBROSIS
     Dosage: UNK
     Route: 065
     Dates: start: 20060422
  24. TOBI [Suspect]
     Active Substance: TOBRAMYCIN
     Dosage: 300 OT, BID
     Route: 055
     Dates: start: 20170901, end: 20170929
  25. TOBI PODHALER [Suspect]
     Active Substance: TOBRAMYCIN
     Indication: PSEUDOMONAS INFECTION
     Dosage: 112 OT, BID (DOSE OF 4 CAPSULES TAKEN TWICE DAILY)
     Route: 055
     Dates: start: 20170301, end: 20170331
  26. PULMOZYME [Concomitant]
     Active Substance: DORNASE ALFA
     Indication: CYSTIC FIBROSIS
     Dosage: UNK
     Route: 065
     Dates: start: 20021003
  27. PRINIVIL [Concomitant]
     Active Substance: LISINOPRIL
     Indication: HYPERTENSION
     Dosage: UNK
     Route: 065
     Dates: start: 20110907
  28. URSODIOL. [Concomitant]
     Active Substance: URSODIOL
     Indication: PROPHYLAXIS
     Dosage: UNK
     Route: 065
     Dates: start: 20111102
  29. MELATONIN [Concomitant]
     Active Substance: MELATONIN
     Indication: SUPPLEMENTATION THERAPY
     Dosage: UNK
     Route: 065
     Dates: start: 20140922

REACTIONS (6)
  - Pain [Recovered/Resolved]
  - Headache [Recovered/Resolved]
  - Insomnia [Unknown]
  - Sinus congestion [Unknown]
  - Anxiety [Unknown]
  - Headache [Recovered/Resolved]

NARRATIVE: CASE EVENT DATE: 20170331
